FAERS Safety Report 8223318-3 (Version None)
Quarter: 2012Q1

REPORT INFORMATION
  Report Type: 
  Country: None (occurrence: None)
  Receive Date: 20120321
  Receipt Date: 20120312
  Transmission Date: 20120608
  Serious: Yes (Hospitalization)
  Sender: FDA-Public Use
  Company Number: BE-ROCHE-1019757

PATIENT
  Age: 74 Year
  Sex: Female

DRUGS (11)
  1. VEMURAFENIB [Interacting]
     Route: 048
     Dates: start: 20111130, end: 20111202
  2. VEMURAFENIB [Suspect]
     Indication: METASTATIC MALIGNANT MELANOMA
     Dosage: DATE OF LAST DOSE PRIOR TO SAE: 01 DEC 2011
     Route: 048
     Dates: start: 20111109, end: 20111123
  3. ACENOCOUMAROL [Interacting]
     Indication: PRODUCT USED FOR UNKNOWN INDICATION
     Dates: start: 20020401, end: 20111123
  4. APOCARD RETARD [Concomitant]
     Dates: start: 20080101
  5. VEMURAFENIB [Interacting]
     Dates: start: 20111206
  6. PANTOPRAZOLE [Concomitant]
     Dates: start: 20090801
  7. CITALOPRAM HYDROBROMIDE [Concomitant]
     Dates: start: 20000101
  8. ZOPICLONE [Concomitant]
     Dates: start: 19980101
  9. SIMVASTATIN [Concomitant]
     Dates: start: 20000101
  10. ALDACTONE [Concomitant]
     Dates: start: 20111117
  11. LASIX [Concomitant]
     Dates: start: 20110301

REACTIONS (2)
  - FALL [None]
  - OVERDOSE [None]
